FAERS Safety Report 9637105 (Version 3)
Quarter: 2014Q2

REPORT INFORMATION
  Report Type: Spontaneous
  Country: US (occurrence: US)
  Receive Date: 20131022
  Receipt Date: 20140418
  Transmission Date: 20141212
  Serious: Yes (Death)
  Sender: FDA-Public Use
  Company Number: US-BRISTOL-MYERS SQUIBB COMPANY-19550599

PATIENT
  Age: 59 Year
  Sex: Male

DRUGS (14)
  1. BYETTA [Suspect]
     Indication: TYPE 2 DIABETES MELLITUS
     Dates: start: 20091218, end: 201106
  2. LESCOL [Concomitant]
  3. ACCUPRIL [Concomitant]
  4. HCTZ [Concomitant]
  5. ASA [Concomitant]
  6. MULTIVITAMIN [Concomitant]
  7. ZOCOR [Concomitant]
  8. LISINOPRIL [Concomitant]
     Dosage: 5MG
     Route: 048
  9. NAPROXEN [Concomitant]
  10. METOPROLOL [Concomitant]
  11. LEXAPRO [Concomitant]
  12. CELEXA [Concomitant]
  13. LAMISIL [Concomitant]
  14. MOBIC [Concomitant]
     Dosage: 7.5(UNITS NOS).

REACTIONS (1)
  - Pancreatic carcinoma [Fatal]
